FAERS Safety Report 6409304-4 (Version None)
Quarter: 2009Q4

REPORT INFORMATION
  Report Type: 
  Country: None (occurrence: None)
  Receive Date: 20091021
  Receipt Date: 20091012
  Transmission Date: 20100525
  Serious: Yes (Other)
  Sender: FDA-Public Use
  Company Number: CHPA2009US20170

PATIENT
  Age: 68 Year
  Sex: Female

DRUGS (5)
  1. BENEFIBER PLUS CALCIUM WITH WHEAT DEXTRIN(NCH) [Suspect]
     Indication: BOWEL MOVEMENT IRREGULARITY
     Dosage: 3 TSP, QD
     Route: 048
     Dates: start: 20091003, end: 20091010
  2. BENEFIBER PLUS CALCIUM WITH WHEAT DEXTRIN(NCH) [Suspect]
     Indication: CONSTIPATION
  3. PRAVASTATIN [Concomitant]
     Indication: BLOOD CHOLESTEROL
  4. ZYRTEC [Concomitant]
  5. DRUG THERAPY NOS [Concomitant]
     Indication: NERVOUS SYSTEM DISORDER

REACTIONS (5)
  - CONSTIPATION [None]
  - DIVERTICULUM [None]
  - FLATULENCE [None]
  - PAIN [None]
  - PYREXIA [None]
